FAERS Safety Report 5381334-3 (Version None)
Quarter: 2007Q2

REPORT INFORMATION
  Report Type: 
  Country: None (occurrence: None)
  Receive Date: 20070629
  Receipt Date: 20061023
  Transmission Date: 20071010
  Serious: Yes (Life-Threatening, Other)
  Sender: FDA-Public Use
  Company Number: 2006129665

PATIENT
  Age: 47 Year
  Sex: Female
  Weight: 172.3669 kg

DRUGS (4)
  1. ZOLOFT [Suspect]
     Indication: DEPRESSION
     Dates: start: 19910101
  2. REZULIN [Suspect]
     Indication: DEPRESSION
     Dates: start: 19910101
  3. ANTIHYPERTENSIVES (ANTIHYPERTENSIVES) [Concomitant]
  4. INSULIN (INSULIN) [Concomitant]

REACTIONS (2)
  - HEPATOCELLULAR DAMAGE [None]
  - HEPATOMEGALY [None]
